FAERS Safety Report 5152955-8 (Version None)
Quarter: 2006Q4

REPORT INFORMATION
  Report Type: 
  Country: None (occurrence: None)
  Receive Date: 20061117
  Receipt Date: 20060920
  Transmission Date: 20070319
  Serious: Yes (Disabling)
  Sender: FDA-Public Use
  Company Number: US-ABBOTT-06P-163-0344421-03

PATIENT
  Sex: Female

DRUGS (20)
  1. RITONAVIR ORAL SOLUTION [Suspect]
     Indication: HIV INFECTION
     Route: 048
     Dates: start: 20040721, end: 20060915
  2. RITONAVIR ORAL SOLUTION [Suspect]
     Route: 048
     Dates: start: 20061002
  3. TIPRANAVIR [Concomitant]
     Indication: HIV INFECTION
     Route: 048
     Dates: start: 20040721, end: 20060915
  4. TIPRANAVIR [Concomitant]
     Route: 048
     Dates: start: 20061002
  5. VIREAD [Concomitant]
     Indication: HIV INFECTION
     Route: 048
     Dates: start: 20040721, end: 20060915
  6. VIREAD [Concomitant]
     Dates: start: 20061002
  7. ABACAVIR [Concomitant]
     Indication: HIV INFECTION
     Route: 048
     Dates: start: 20040721, end: 20060915
  8. ABACAVIR [Concomitant]
     Dates: start: 20061002
  9. LAMIVUDINE [Concomitant]
     Indication: HIV INFECTION
     Route: 048
     Dates: start: 20040721, end: 20060915
  10. LAMIVUDINE [Concomitant]
     Dates: start: 20061002
  11. SIDERAL [Concomitant]
     Indication: MEDICAL DIET
     Route: 048
     Dates: start: 20051006
  12. FOLIC ACID [Concomitant]
     Indication: VITAMIN SUPPLEMENTATION
     Route: 048
     Dates: start: 19950302
  13. BACTRIM [Concomitant]
     Indication: ANTIBIOTIC PROPHYLAXIS
     Route: 048
     Dates: start: 19950302
  14. BACTRIM [Concomitant]
     Indication: PNEUMOCYSTIS JIROVECI PNEUMONIA
  15. ZITHROMAX [Concomitant]
     Indication: ANTIBIOTIC PROPHYLAXIS
     Route: 048
     Dates: start: 20030220
  16. ZITHROMAX [Concomitant]
     Indication: MYCOBACTERIUM AVIUM COMPLEX INFECTION
  17. CYPROHEPTADINE HYDROCHLORIDE [Concomitant]
     Indication: DECREASED APPETITE
     Route: 048
     Dates: start: 20051101
  18. CALCIUM [Concomitant]
     Indication: MINERAL SUPPLEMENTATION
     Route: 048
     Dates: start: 20051011
  19. VITAMIN CAP [Concomitant]
     Indication: MEDICAL DIET
     Route: 048
     Dates: start: 19950302
  20. PEDIASURE [Concomitant]
     Indication: MEDICAL DIET
     Route: 048
     Dates: start: 20060401

REACTIONS (2)
  - COAGULATION TIME PROLONGED [None]
  - CONTUSION [None]
